FAERS Safety Report 9704609 (Version 1)
Quarter: 2013Q4

REPORT INFORMATION
  Report Type: Spontaneous
  Country: IT (occurrence: IT)
  Receive Date: 20131122
  Receipt Date: 20131122
  Transmission Date: 20140711
  Serious: Yes (Other)
  Sender: FDA-Public Use
  Company Number: IT-PFIZER INC-2013329746

PATIENT
  Age: 65 Year
  Sex: Female

DRUGS (5)
  1. GEMCITABINE HYDROCHLORIDE [Suspect]
     Indication: PANCREATIC CARCINOMA
     Dosage: 1000 MG/M2, CYCLIC (DAYS 1,8,15 EVERY 28 DAYS)
     Dates: start: 201003, end: 201009
  2. INSULIN [Concomitant]
     Dosage: UNK
  3. ALDACTONE [Concomitant]
     Dosage: 100 MG, UNK
  4. DILATREND [Concomitant]
     Dosage: UNK
  5. CARDIOASPIRIN [Concomitant]
     Dosage: UNK

REACTIONS (2)
  - Capillary leak syndrome [Recovering/Resolving]
  - Pulmonary hypertension [Recovered/Resolved]
